FAERS Safety Report 11798898 (Version 1)
Quarter: 2015Q4

REPORT INFORMATION
  Report Type: Spontaneous
  Country: CA (occurrence: CA)
  Receive Date: 20151203
  Receipt Date: 20151203
  Transmission Date: 20160305
  Serious: Yes (Other)
  Sender: FDA-Public Use
  Company Number: CA-TEVA-613510ACC

PATIENT
  Age: 58 Year
  Sex: Male

DRUGS (8)
  1. BISOPROLOL [Concomitant]
     Active Substance: BISOPROLOL
  2. LANSOPRAZOLE. [Concomitant]
     Active Substance: LANSOPRAZOLE
  3. PREDNISONE. [Concomitant]
     Active Substance: PREDNISONE
  4. FLUCONAZOLE. [Suspect]
     Active Substance: FLUCONAZOLE
     Indication: MENINGITIS CRYPTOCOCCAL
     Dosage: 800 MILLIGRAM DAILY;
     Route: 048
  5. TACROLIMUS. [Suspect]
     Active Substance: TACROLIMUS
     Dosage: 2 MILLIGRAM DAILY;
     Route: 048
  6. DOMPERIDONE [Concomitant]
     Active Substance: DOMPERIDONE
  7. ENTERIC COATED ASA [Concomitant]
     Active Substance: ASPIRIN
  8. TACROLIMUS. [Suspect]
     Active Substance: TACROLIMUS
     Indication: SECONDARY IMMUNODEFICIENCY
     Dosage: 4 MILLIGRAM DAILY;
     Route: 048

REACTIONS (7)
  - Agitation [Unknown]
  - Confusional state [Unknown]
  - Delirium [Unknown]
  - Blood creatinine increased [Unknown]
  - Drug level increased [Unknown]
  - Myoclonus [Unknown]
  - Tremor [Unknown]
